FAERS Safety Report 10744951 (Version 1)
Quarter: 2015Q1

REPORT INFORMATION
  Report Type: Spontaneous
  Country: US (occurrence: None)
  Receive Date: 20150126
  Receipt Date: 20150126
  Transmission Date: 20150721
  Serious: No
  Sender: FDA-Public Use
  Company Number: None

PATIENT
  Age: 76 Year
  Sex: Male

DRUGS (15)
  1. AMOPOCILLIN [Concomitant]
  2. GABAPENTIN 300MG [Concomitant]
     Active Substance: GABAPENTIN
  3. OMEPRAZOLE. [Concomitant]
     Active Substance: OMEPRAZOLE
  4. PROMETHAZINE [Concomitant]
     Active Substance: PROMETHAZINE\PROMETHAZINE HYDROCHLORIDE
  5. CLINDAMYCIN [Concomitant]
     Active Substance: CLINDAMYCIN\CLINDAMYCIN PHOSPHATE
  6. PROPRAMOLOL [Concomitant]
  7. XTANDI [Suspect]
     Active Substance: ENZALUTAMIDE
     Indication: NEOPLASM MALIGNANT
     Route: 048
     Dates: start: 20141105, end: 20150122
  8. ONDANSETRON [Concomitant]
     Active Substance: ONDANSETRON
  9. FISH OIL [Concomitant]
     Active Substance: FISH OIL
  10. PREDNISONE. [Concomitant]
     Active Substance: PREDNISONE
  11. GABAPENTIN 100MG [Concomitant]
     Active Substance: GABAPENTIN
  12. CENTRUM TAB SILVER [Concomitant]
  13. ALPRAZOLAM. [Concomitant]
     Active Substance: ALPRAZOLAM
  14. BUTALBITAL AND ACETAMINOPHEN [Concomitant]
     Active Substance: ACETAMINOPHEN\BUTALBITAL
  15. ACETAMINOPHEN/COD [Concomitant]

REACTIONS (1)
  - Drug ineffective [None]

NARRATIVE: CASE EVENT DATE: 20150122
